FAERS Safety Report 6962368-1 (Version None)
Quarter: 2010Q3

REPORT INFORMATION
  Report Type: 
  Country: None (occurrence: None)
  Receive Date: 20100902
  Receipt Date: 20100827
  Transmission Date: 20110219
  Serious: Yes (Hospitalization, Other)
  Sender: FDA-Public Use
  Company Number: IT-SANOFI-AVENTIS-200916694GDDC

PATIENT
  Age: 35 Year
  Sex: Female

DRUGS (4)
  1. LEFLUNOMIDE [Suspect]
     Indication: RHEUMATOID ARTHRITIS
     Route: 048
     Dates: start: 20080901, end: 20081101
  2. EUTIROX [Suspect]
     Indication: AUTOIMMUNE THYROIDITIS
     Route: 048
  3. CORTISONE ACETATE [Suspect]
     Indication: RHEUMATOID ARTHRITIS
     Dosage: DOSE AS USED: UNK
  4. NO MENTION OF CONCOMITANT DRUGS [Concomitant]

REACTIONS (3)
  - DRUG EXPOSURE DURING PREGNANCY [None]
  - HEPATITIS ACUTE [None]
  - URTICARIA [None]
